FAERS Safety Report 8798565 (Version 1)
Quarter: 2012Q4

REPORT INFORMATION
  Report Type: Spontaneous
  Country: US (occurrence: None)
  Receive Date: 20120917
  Receipt Date: 20120917
  Transmission Date: 20130627
  Serious: Yes (Other)
  Sender: FDA-Public Use
  Company Number: None

PATIENT
  Age: 27 Year
  Sex: Female
  Weight: 58.97 kg

DRUGS (2)
  1. CYMBALTA [Suspect]
     Indication: DEPRESSION
     Route: 048
     Dates: start: 20081217, end: 20120909
  2. CYMBALTA [Suspect]
     Indication: ANXIETY
     Route: 048
     Dates: start: 20081217, end: 20120909

REACTIONS (8)
  - Depression [None]
  - Anger [None]
  - Nausea [None]
  - Fatigue [None]
  - Feeling of despair [None]
  - Feeling abnormal [None]
  - Personality change [None]
  - Withdrawal syndrome [None]
